FAERS Safety Report 20536377 (Version 1)
Quarter: 2022Q1

REPORT INFORMATION
  Report Type: Spontaneous
  Country: GB (occurrence: GB)
  Receive Date: 20220302
  Receipt Date: 20220302
  Transmission Date: 20220423
  Serious: Yes (Hospitalization)
  Sender: FDA-Public Use
  Company Number: None

PATIENT
  Sex: Male

DRUGS (2)
  1. FENTANYL [Suspect]
     Active Substance: FENTANYL
     Indication: Ill-defined disorder
     Dosage: 100 MICROGRAMS PER DAY WHEN REQUIRED FOR PAIN DURING DRESSING CHANGES
     Route: 062
  2. MORPHINE [Concomitant]
     Active Substance: MORPHINE
     Indication: Ill-defined disorder

REACTIONS (5)
  - Medication error [Unknown]
  - Somnolence [Recovered/Resolved]
  - Constipation [Recovering/Resolving]
  - Off label use [Unknown]
  - Product use in unapproved indication [Unknown]
